FAERS Safety Report 11180203 (Version 1)
Quarter: 2015Q2

REPORT INFORMATION
  Report Type: Spontaneous
  Country: SG (occurrence: None)
  Receive Date: 20150609
  Receipt Date: 20150609
  Transmission Date: 20150821
  Serious: Yes (Other)
  Sender: FDA-Public Use
  Company Number: FK201502549

PATIENT
  Age: 76 Year
  Sex: Female

DRUGS (4)
  1. METHYLPREDNISOLONE (MANUFACTURER UNKNOWN) (METHYLPREDNISOLONE SODIUM SUCCINATE) (METHYLPREDNISOLONE SODIUM SUCCINATE) [Suspect]
     Active Substance: METHYLPREDNISOLONE
     Indication: EVIDENCE BASED TREATMENT
  2. SULFASALAZINE (SULFASALAZINE) [Concomitant]
     Active Substance: SULFASALAZINE
  3. PREDNISOLONE (PREDNISOLONE) [Suspect]
     Active Substance: PREDNISOLONE
     Indication: EVIDENCE BASED TREATMENT
  4. PREDNISOLONE (PREDNISOLONE) [Suspect]
     Active Substance: PREDNISOLONE
     Indication: RHEUMATOID ARTHRITIS

REACTIONS (3)
  - Systemic mycosis [None]
  - Aspergillus infection [None]
  - Orbital infection [None]
